FAERS Safety Report 13873194 (Version 4)
Quarter: 2017Q3

REPORT INFORMATION
  Report Type: Spontaneous
  Country: GB (occurrence: GB)
  Receive Date: 20170816
  Receipt Date: 20170926
  Transmission Date: 20171127
  Serious: Yes (Life-Threatening, Hospitalization)
  Sender: FDA-Public Use
  Company Number: PHFR2017GB006586

PATIENT
  Age: 49 Year
  Sex: Female

DRUGS (2)
  1. ZYKADIA [Suspect]
     Active Substance: CERITINIB
     Indication: NON-SMALL CELL LUNG CANCER
     Dosage: UNK
     Route: 065
     Dates: start: 20170627
  2. ZYKADIA [Suspect]
     Active Substance: CERITINIB
     Indication: ANAPLASTIC LYMPHOMA KINASE GENE MUTATION
     Dosage: 750 MG, UNK
     Route: 048
     Dates: start: 20170418, end: 20170530

REACTIONS (7)
  - Colonic abscess [Unknown]
  - Diarrhoea [Not Recovered/Not Resolved]
  - Large intestine perforation [Recovered/Resolved]
  - Diverticulitis [Unknown]
  - Diverticulitis intestinal haemorrhagic [Unknown]
  - Intra-abdominal fluid collection [Unknown]
  - Abdominal pain [Unknown]

NARRATIVE: CASE EVENT DATE: 20170530
